FAERS Safety Report 5506797-1 (Version None)
Quarter: 2007Q4

REPORT INFORMATION
  Report Type: 
  Country: None (occurrence: None)
  Receive Date: 20071105
  Receipt Date: 20071026
  Transmission Date: 20080405
  Serious: Yes (Other)
  Sender: FDA-Public Use
  Company Number: US-PFIZER INC-2007090788

PATIENT
  Sex: Male

DRUGS (2)
  1. LIPITOR [Suspect]
  2. PRAVACHOL [Concomitant]

REACTIONS (5)
  - ARTHROPATHY [None]
  - GAIT DISTURBANCE [None]
  - JOINT RANGE OF MOTION DECREASED [None]
  - MUSCLE SPASMS [None]
  - MYALGIA [None]
